FAERS Safety Report 20879439 (Version 1)
Quarter: 2022Q2

REPORT INFORMATION
  Report Type: Spontaneous
  Country: US (occurrence: US)
  Receive Date: 20220526
  Receipt Date: 20220526
  Transmission Date: 20220721
  Serious: No
  Sender: FDA-Public Use
  Company Number: US-RADIUS HEALTH INC.-2021US003606

PATIENT
  Age: 62 Year
  Sex: Female

DRUGS (2)
  1. TYMLOS [Suspect]
     Active Substance: ABALOPARATIDE
     Indication: Osteoporosis
     Dosage: 80 MICROGRAM, QD
     Route: 058
     Dates: start: 20210725
  2. TYMLOS [Suspect]
     Active Substance: ABALOPARATIDE
     Dosage: 80 MICROGRAM, QD
     Route: 058
     Dates: start: 20210725

REACTIONS (14)
  - Contusion [Recovering/Resolving]
  - Anxiety [Not Recovered/Not Resolved]
  - Injection site urticaria [Recovering/Resolving]
  - Rash macular [Recovering/Resolving]
  - Flushing [Not Recovered/Not Resolved]
  - Injection site pain [Not Recovered/Not Resolved]
  - Heart rate increased [Recovering/Resolving]
  - Headache [Not Recovered/Not Resolved]
  - Injection site erythema [Not Recovered/Not Resolved]
  - Injection site haemorrhage [Recovering/Resolving]
  - Abdominal pain upper [Recovered/Resolved]
  - Injection site pruritus [Not Recovered/Not Resolved]
  - Product administered at inappropriate site [Not Recovered/Not Resolved]
  - Accidental exposure to product [Not Recovered/Not Resolved]

NARRATIVE: CASE EVENT DATE: 20210814
